FAERS Safety Report 7692209-9 (Version None)
Quarter: 2011Q3

REPORT INFORMATION
  Report Type: 
  Country: None (occurrence: None)
  Receive Date: 20110818
  Receipt Date: 20110809
  Transmission Date: 20111222
  Serious: Yes (Death, Other)
  Sender: FDA-Public Use
  Company Number: TR-MILLENNIUM PHARMACEUTICALS, INC.-2011-03519

PATIENT

DRUGS (5)
  1. METHYLPREDNISOLONE [Suspect]
     Indication: MULTIPLE MYELOMA
  2. MELPHALAN HYDROCHLORIDE [Suspect]
     Indication: MULTIPLE MYELOMA
  3. VELCADE [Suspect]
     Indication: MULTIPLE MYELOMA
     Dosage: 1.3 MG/M2, CYCLIC
  4. THALIDOMIDE [Suspect]
     Indication: MULTIPLE MYELOMA
     Dosage: 100 MG, CYCLIC
  5. ACTONEL [Suspect]
     Indication: MULTIPLE MYELOMA

REACTIONS (3)
  - RESPIRATORY FAILURE [None]
  - PLEURAL EFFUSION [None]
  - ADENOCARCINOMA [None]
